FAERS Safety Report 20605725 (Version 3)
Quarter: 2022Q1

REPORT INFORMATION
  Report Type: Report from Study
  Country: US (occurrence: US)
  Receive Date: 20220317
  Receipt Date: 20220328
  Transmission Date: 20220423
  Serious: Yes (Death)
  Sender: FDA-Public Use
  Company Number: US-ABBVIE-22K-163-4319718-00

PATIENT
  Sex: Male
  Weight: 63.560 kg

DRUGS (21)
  1. DUOPA [Suspect]
     Active Substance: CARBIDOPA\LEVODOPA
     Indication: Parkinson^s disease
     Dosage: 4.63 MG/ML 20 MG/ML
     Route: 050
     Dates: start: 20160715, end: 202201
  2. DUOPA [Suspect]
     Active Substance: CARBIDOPA\LEVODOPA
  3. FLOMAX [Concomitant]
     Active Substance: TAMSULOSIN HYDROCHLORIDE
     Indication: Product used for unknown indication
     Route: 048
     Dates: end: 2021
  4. CLONAZEPAM [Concomitant]
     Active Substance: CLONAZEPAM
     Indication: Anxiety
     Route: 048
     Dates: end: 202201
  5. REQUIP [Concomitant]
     Active Substance: ROPINIROLE HYDROCHLORIDE
     Indication: Restless legs syndrome
     Route: 048
     Dates: end: 2021
  6. ARICEPT [Concomitant]
     Active Substance: DONEPEZIL HYDROCHLORIDE
     Indication: Memory impairment
     Route: 048
     Dates: end: 202201
  7. ALEVE [Concomitant]
     Active Substance: NAPROXEN SODIUM
     Indication: Discomfort
     Dosage: 220MG
     Route: 048
     Dates: end: 202201
  8. COLACE [Concomitant]
     Active Substance: DOCUSATE SODIUM
     Indication: Constipation prophylaxis
     Route: 048
     Dates: end: 202201
  9. FISH OIL [Concomitant]
     Active Substance: FISH OIL
     Indication: Supplementation therapy
     Dosage: 1200-144MG
     Route: 048
     Dates: end: 202112
  10. SINEMET [Concomitant]
     Active Substance: CARBIDOPA\LEVODOPA
     Indication: Parkinson^s disease
     Dosage: 25-100MG
     Route: 048
     Dates: end: 202201
  11. FINASTERIDE [Concomitant]
     Active Substance: FINASTERIDE
     Indication: Prostatomegaly
     Dosage: 5MG
     Route: 048
     Dates: end: 202201
  12. PRILOSEC [Concomitant]
     Active Substance: OMEPRAZOLE MAGNESIUM
     Indication: Gastrooesophageal reflux disease
     Dosage: 20MG
     Route: 048
     Dates: end: 202201
  13. MIRALAX [Concomitant]
     Active Substance: POLYETHYLENE GLYCOL 3350
     Indication: Constipation
     Dosage: 17G/DOSE
     Route: 048
     Dates: end: 202112
  14. ALLEGRA [Concomitant]
     Active Substance: FEXOFENADINE HYDROCHLORIDE
     Indication: Hypersensitivity
     Route: 048
     Dates: end: 202110
  15. SINEMET [Concomitant]
     Active Substance: CARBIDOPA\LEVODOPA
     Indication: Product used for unknown indication
     Dosage: 50-200MG
     Route: 048
  16. ASPIRIN [Concomitant]
     Active Substance: ASPIRIN
     Indication: Cardiovascular event prophylaxis
     Route: 048
     Dates: end: 202201
  17. SINEMET [Concomitant]
     Active Substance: CARBIDOPA\LEVODOPA
     Indication: Parkinson^s disease
     Dosage: ER
     Dates: end: 202201
  18. COVID-19 VACCINE [Concomitant]
     Indication: COVID-19 immunisation
     Dosage: FIRST DOSE.
     Route: 030
  19. COVID-19 VACCINE [Concomitant]
     Dosage: SECOND DOSE.
     Route: 030
  20. COVID-19 VACCINE [Concomitant]
     Dosage: THIRD DOSE.
     Route: 030
  21. INFLUENZA VIRUS VACCINE [Concomitant]
     Active Substance: INFLUENZA VIRUS VACCINE
     Indication: Influenza immunisation

REACTIONS (4)
  - Parkinson^s disease [Fatal]
  - Dementia [Not Recovered/Not Resolved]
  - Hallucination [Not Recovered/Not Resolved]
  - Dysphagia [Not Recovered/Not Resolved]

NARRATIVE: CASE EVENT DATE: 20170101
